FAERS Safety Report 6174837-5 (Version None)
Quarter: 2009Q2

REPORT INFORMATION
  Report Type: 
  Country: None (occurrence: None)
  Receive Date: 20090430
  Receipt Date: 20081121
  Transmission Date: 20091009
  Serious: No
  Sender: FDA-Public Use
  Company Number: US-ASTRAZENECA-2008UW26287

PATIENT
  Age: 32 Year
  Sex: Male

DRUGS (2)
  1. NEXIUM [Suspect]
     Indication: VOMITING
     Route: 048
     Dates: start: 20081119
  2. ZEMPLAR [Concomitant]

REACTIONS (3)
  - ABDOMINAL PAIN [None]
  - DECREASED APPETITE [None]
  - VOMITING [None]
